FAERS Safety Report 11449126 (Version 1)
Quarter: 2015Q3

REPORT INFORMATION
  Report Type: Spontaneous
  Country: ES (occurrence: ES)
  Receive Date: 20150902
  Receipt Date: 20150902
  Transmission Date: 20151125
  Serious: Yes (Hospitalization)
  Sender: FDA-Public Use
  Company Number: PHHY2015ES103872

PATIENT
  Age: 36 Year
  Sex: Male

DRUGS (3)
  1. TRILEPTAL [Suspect]
     Active Substance: OXCARBAZEPINE
     Indication: AUTISM
     Dosage: 300 MG, UNK
     Route: 065
     Dates: start: 201407, end: 20141021
  2. LORAZEPAM. [Concomitant]
     Active Substance: LORAZEPAM
     Indication: AUTISM
     Dosage: UNK
     Route: 065
     Dates: start: 201407, end: 20141021
  3. NEMACTIL [Suspect]
     Active Substance: PERICIAZINE
     Indication: AUTISM
     Dosage: UNK
     Route: 065
     Dates: start: 201407

REACTIONS (2)
  - Psychomotor hyperactivity [Recovered/Resolved]
  - Rhabdomyolysis [Recovered/Resolved]

NARRATIVE: CASE EVENT DATE: 20141021
